FAERS Safety Report 7224734-9 (Version None)
Quarter: 2011Q1

REPORT INFORMATION
  Report Type: 
  Country: None (occurrence: None)
  Receive Date: 20110106
  Receipt Date: 20110106
  Transmission Date: 20110831
  Serious: Yes (Other)
  Sender: FDA-Public Use
  Company Number: None

PATIENT
  Age: 30 Year
  Sex: Female
  Weight: 52.1637 kg

DRUGS (1)
  1. DYSPORT [Suspect]
     Dosage: 45 UNITS ONCE
     Dates: start: 20101220, end: 20101220

REACTIONS (2)
  - EYELID PTOSIS [None]
  - EYELID OEDEMA [None]
